FAERS Safety Report 5753558-4 (Version None)
Quarter: 2008Q2

REPORT INFORMATION
  Report Type: 
  Country: None (occurrence: None)
  Receive Date: 20080530
  Receipt Date: 20080521
  Transmission Date: 20081010
  Serious: Yes (Death)
  Sender: FDA-Public Use
  Company Number: IT-AVENTIS-200814287GDDC

PATIENT
  Age: 56 Year
  Sex: Female

DRUGS (2)
  1. TAXOTERE [Suspect]
     Route: 042
     Dates: start: 20080208, end: 20080321
  2. ANTINEOPLASTIC AGENTS [Suspect]
     Indication: BREAST CANCER
     Route: 048
     Dates: start: 20080208, end: 20080321

REACTIONS (1)
  - RESPIRATORY FAILURE [None]
